FAERS Safety Report 4502095-3 (Version None)
Quarter: 2004Q4

REPORT INFORMATION
  Report Type: 
  Country: None (occurrence: None)
  Receive Date: 20041109
  Receipt Date: 20041026
  Transmission Date: 20050328
  Serious: Yes (Other)
  Sender: FDA-Public Use
  Company Number: JP_040804232

PATIENT
  Age: 60 Year
  Sex: Male

DRUGS (8)
  1. HUMALOG [Suspect]
     Indication: DIABETES MELLITUS
     Dosage: 21 U DAY
     Dates: start: 20031117, end: 20040817
  2. BUFFERIN [Concomitant]
  3. COROHERSER (DILTIAZEM HYDROCHLORIDE) [Interacting]
  4. MECOBALAMIN [Concomitant]
  5. BASEN (VOGLIBOSE) [Concomitant]
  6. EURODIN (ESTAZOLAM) [Concomitant]
  7. AMOBAN (ZOPLICLONE) [Concomitant]
  8. NICHISTATE(TICLOPIDINE  HYDROCHLORIDE) [Concomitant]

REACTIONS (5)
  - BRONCHITIS ACUTE [None]
  - C-REACTIVE PROTEIN INCREASED [None]
  - MYELOPROLIFERATIVE DISORDER [None]
  - NAUSEA [None]
  - STOMACH DISCOMFORT [None]
